FAERS Safety Report 23655862 (Version 1)
Quarter: 2024Q1

REPORT INFORMATION
  Report Type: Spontaneous
  Country: US (occurrence: US)
  Receive Date: 20240321
  Receipt Date: 20240321
  Transmission Date: 20240410
  Serious: Yes (Other)
  Sender: FDA-Public Use
  Company Number: US-GLAXOSMITHKLINE-US2024034423

PATIENT

DRUGS (1)
  1. JESDUVROQ [Suspect]
     Active Substance: DAPRODUSTAT
     Indication: Anaemia
     Dosage: UNK

REACTIONS (1)
  - Gastrointestinal erosion [Recovered/Resolved]
